FAERS Safety Report 17062253 (Version 2)
Quarter: 2019Q4

REPORT INFORMATION
  Report Type: Spontaneous
  Country: US (occurrence: US)
  Receive Date: 20191122
  Receipt Date: 20191126
  Transmission Date: 20200122
  Serious: No
  Sender: FDA-Public Use
  Company Number: US-ELI_LILLY_AND_COMPANY-US201911008924

PATIENT
  Age: 43 Year
  Sex: Female

DRUGS (3)
  1. FORTEO [Suspect]
     Active Substance: TERIPARATIDE
     Indication: HYPERPARATHYROIDISM
     Dosage: UNK UNK, TID
     Route: 065
  2. NATPARA (PARATHYROID HORMONE) [Concomitant]
     Active Substance: PARATHYROID HORMONE
     Indication: HYPERPARATHYROIDISM
  3. FORTEO [Suspect]
     Active Substance: TERIPARATIDE
     Dosage: UNK UNK, BID
     Route: 065
     Dates: start: 201909

REACTIONS (6)
  - Overdose [Unknown]
  - Full blood count increased [Recovered/Resolved]
  - Full blood count decreased [Recovered/Resolved]
  - Inappropriate schedule of product administration [Unknown]
  - Blood calcium abnormal [Unknown]
  - Off label use [Unknown]
